FAERS Safety Report 7525023-5 (Version None)
Quarter: 2011Q2

REPORT INFORMATION
  Report Type: 
  Country: None (occurrence: None)
  Receive Date: 20110606
  Receipt Date: 20110526
  Transmission Date: 20111010
  Serious: Yes (Hospitalization)
  Sender: FDA-Public Use
  Company Number: US-NOVOPROD-329030

PATIENT
  Sex: Female
  Weight: 60.771 kg

DRUGS (4)
  1. PLAVIX [Concomitant]
  2. VICTOZA [Suspect]
     Indication: TYPE 2 DIABETES MELLITUS
     Dosage: 1.8 MG, QD
     Dates: start: 20110504, end: 20110526
  3. METFORMIN HCL [Concomitant]
     Indication: TYPE 2 DIABETES MELLITUS
     Dosage: UNK
  4. TRILIPIX [Concomitant]

REACTIONS (3)
  - INTESTINAL OBSTRUCTION [None]
  - CONSTIPATION [None]
  - WEIGHT DECREASED [None]
